FAERS Safety Report 20878788 (Version 1)
Quarter: 2022Q2

REPORT INFORMATION
  Report Type: Spontaneous
  Country: US (occurrence: US)
  Receive Date: 20220526
  Receipt Date: 20220526
  Transmission Date: 20220721
  Serious: No
  Sender: FDA-Public Use
  Company Number: US-PFIZER INC-202200551150

PATIENT
  Age: 63 Year
  Sex: Female

DRUGS (1)
  1. LIOTHYRONINE SODIUM [Suspect]
     Active Substance: LIOTHYRONINE SODIUM
     Dosage: UNK
     Dates: start: 2020

REACTIONS (4)
  - Feeling abnormal [Unknown]
  - Influenza like illness [Unknown]
  - Myalgia [Unknown]
  - Body temperature abnormal [Unknown]
